FAERS Safety Report 9602159 (Version 1)
Quarter: 2013Q4

REPORT INFORMATION
  Report Type: Spontaneous
  Country: GB (occurrence: GB)
  Receive Date: 20131007
  Receipt Date: 20131007
  Transmission Date: 20140711
  Serious: Yes (Disabling, Other)
  Sender: FDA-Public Use
  Company Number: GB-TEVA-435553ISR

PATIENT
  Age: 16 Year
  Sex: Female
  Weight: 47.17 kg

DRUGS (3)
  1. OFLOXACIN [Suspect]
     Indication: PELVIC INFLAMMATORY DISEASE
     Route: 048
     Dates: start: 20130829
  2. MICROGYNON [Concomitant]
  3. METRONIDAZOLE [Concomitant]

REACTIONS (9)
  - Sleep disorder [Recovering/Resolving]
  - Nausea [Not Recovered/Not Resolved]
  - Panic attack [Recovering/Resolving]
  - Irritability [Recovered/Resolved]
  - Paranoia [Not Recovered/Not Resolved]
  - Vomiting [Not Recovered/Not Resolved]
  - Dizziness [Recovered/Resolved]
  - Decreased appetite [Not Recovered/Not Resolved]
  - Drug administered to patient of inappropriate age [Unknown]
